FAERS Safety Report 20897227 (Version 2)
Quarter: 2022Q2

REPORT INFORMATION
  Report Type: Spontaneous
  Country: JP (occurrence: JP)
  Receive Date: 20220531
  Receipt Date: 20220615
  Transmission Date: 20220720
  Serious: Yes (Hospitalization, Other)
  Sender: FDA-Public Use
  Company Number: JP-PFIZER INC-202200757064

PATIENT
  Age: 30 Year
  Sex: Female
  Weight: 60 kg

DRUGS (9)
  1. PAXLOVID [Suspect]
     Active Substance: NIRMATRELVIR\RITONAVIR
     Indication: COVID-19 treatment
     Dosage: [PF-07321332 300 MG]/[RITONAVIR 100 MG]; 2X/DAY
     Route: 048
     Dates: start: 20220510, end: 20220513
  2. COLDRIN [CLOFEDANOL HYDROCHLORIDE] [Concomitant]
     Dosage: 25 MG, 3X/DAY
     Route: 048
     Dates: start: 20220506, end: 20220512
  3. TRANSAMIN [Concomitant]
     Active Substance: TRANEXAMIC ACID
     Dosage: 500 MG, 3X/DAY
     Route: 048
     Dates: start: 20220506, end: 20220512
  4. DECADRON [Concomitant]
     Active Substance: DEXAMETHASONE
     Indication: Pyrexia
     Dosage: 6 MG, 1X/DAY
     Route: 048
     Dates: start: 20220509, end: 20220513
  5. POLARAMINE [Concomitant]
     Active Substance: DEXCHLORPHENIRAMINE MALEATE
     Dosage: 5 MG, 1X/DAY
     Route: 042
     Dates: start: 20220516, end: 20220516
  6. GASTER [Concomitant]
     Active Substance: FAMOTIDINE
     Dosage: 20 MG, 1X/DAY
     Route: 042
     Dates: start: 20220516, end: 20220516
  7. SOLU-MEDROL [Concomitant]
     Active Substance: METHYLPREDNISOLONE SODIUM SUCCINATE
     Dosage: 125 MG, 1X/DAY
     Route: 042
     Dates: start: 20220516, end: 20220516
  8. XYZAL [Concomitant]
     Active Substance: LEVOCETIRIZINE DIHYDROCHLORIDE
     Dosage: 5 MG, 1X/DAY
     Route: 048
     Dates: start: 20220516, end: 20220526
  9. NIPOLAZIN [Concomitant]
     Dosage: 3 MG, 2X/DAY
     Route: 048
     Dates: start: 20220518, end: 20220524

REACTIONS (15)
  - Toxic epidermal necrolysis [Unknown]
  - Urticaria [Unknown]
  - Pruritus [Unknown]
  - Erythema [Unknown]
  - White blood cell count increased [Unknown]
  - Papule [Unknown]
  - Miliaria [Unknown]
  - Paraesthesia [Unknown]
  - Mycoplasma infection [Unknown]
  - Rash papular [Recovering/Resolving]
  - Paraesthesia oral [Recovering/Resolving]
  - Dyspnoea [Recovering/Resolving]
  - Dysphagia [Recovering/Resolving]
  - Off label use [Unknown]
  - Product use issue [Unknown]

NARRATIVE: CASE EVENT DATE: 20220510
